FAERS Safety Report 7355767-X (Version None)
Quarter: 2011Q1

REPORT INFORMATION
  Report Type: 
  Country: None (occurrence: None)
  Receive Date: 20110316
  Receipt Date: 20110314
  Transmission Date: 20110831
  Serious: Yes (Other)
  Sender: FDA-Public Use
  Company Number: ES-MERCK-1103ESP00023

PATIENT
  Age: 51 Year
  Sex: Female

DRUGS (1)
  1. JANUMET [Suspect]
     Indication: TYPE 2 DIABETES MELLITUS
     Route: 048
     Dates: start: 20101228, end: 20110101

REACTIONS (3)
  - HAEMATURIA [None]
  - BLADDER SPASM [None]
  - DYSURIA [None]
